FAERS Safety Report 4936348-1 (Version None)
Quarter: 2006Q1

REPORT INFORMATION
  Report Type: 
  Country: None (occurrence: None)
  Receive Date: 20060127
  Receipt Date: 20051207
  Transmission Date: 20060701
  Serious: Yes (Other)
  Sender: FDA-Public Use
  Company Number: 2005165869

PATIENT
  Age: 91 Year
  Sex: Female
  Weight: 63.5036 kg

DRUGS (7)
  1. LYRICA [Suspect]
     Indication: NEUROPATHY
     Dosage: 100 MG (50 MG, 2 IN 1 D), ORAL
     Route: 048
     Dates: start: 20051108
  2. TOPROL-XL [Concomitant]
  3. POTASSIUM (POTASSIUM) [Concomitant]
  4. LESCOL [Concomitant]
  5. ASPIRIN [Concomitant]
  6. COSOPT [Concomitant]
  7. LUMIGAN [Concomitant]

REACTIONS (4)
  - INTRAOCULAR PRESSURE INCREASED [None]
  - PAIN [None]
  - SOMNOLENCE [None]
  - VISION BLURRED [None]
